FAERS Safety Report 8956988 (Version 1)
Quarter: 2012Q4

REPORT INFORMATION
  Report Type: 
  Country: GB (occurrence: GB)
  Receive Date: 20121211
  Receipt Date: 20121211
  Transmission Date: 20130627
  Serious: Yes (Disabling)
  Sender: FDA-Public Use
  Company Number: GB-PURDUE-GBR-2012-0012317

PATIENT
  Age: 31 Year
  Sex: Male

DRUGS (2)
  1. BUPRENORPHINE [Suspect]
     Indication: PRODUCT USED FOR UNKNOWN INDICATION
     Dosage: UNK
     Route: 065
     Dates: start: 20120910
  2. METHADONE [Suspect]
     Indication: PRODUCT USED FOR UNKNOWN INDICATION
     Dosage: UNK
     Route: 065
     Dates: start: 20120814

REACTIONS (6)
  - Paranoia [Recovered/Resolved]
  - Pain [Unknown]
  - Tachyphrenia [Unknown]
  - Anxiety [Recovered/Resolved]
  - Urinary retention [Unknown]
  - Vomiting [Unknown]
